FAERS Safety Report 20777223 (Version 1)
Quarter: 2022Q2

REPORT INFORMATION
  Report Type: Report from Study
  Country: BR (occurrence: BR)
  Receive Date: 20220503
  Receipt Date: 20220503
  Transmission Date: 20220720
  Serious: Yes (Other)
  Sender: FDA-Public Use
  Company Number: BR-ABBOTT-2022A-1348202

PATIENT
  Sex: Female
  Weight: 50 kg

DRUGS (2)
  1. DEPAKENE [Suspect]
     Active Substance: VALPROIC ACID
     Indication: Seizure
     Dosage: DAILY DOSE 1000 MILLIGRAM, IN THE MORNING, AT NIGHT
     Route: 048
     Dates: start: 2011
  2. PHENOBARBITAL [Suspect]
     Active Substance: PHENOBARBITAL
     Indication: Seizure
     Dosage: DAILY DOSE  100 MILLIGRAM, 1 TABLET, AT NIGHT
     Route: 065
     Dates: start: 2011

REACTIONS (2)
  - Cerebrovascular accident [Unknown]
  - Platelet count decreased [Not Recovered/Not Resolved]
